FAERS Safety Report 7823466-3 (Version None)
Quarter: 2011Q4

REPORT INFORMATION
  Report Type: 
  Country: None (occurrence: None)
  Receive Date: 20111019
  Receipt Date: 20111006
  Transmission Date: 20120403
  Serious: Yes (Hospitalization)
  Sender: FDA-Public Use
  Company Number: US-JNJFOC-20110810916

PATIENT
  Sex: Male
  Weight: 65.8 kg

DRUGS (12)
  1. COLACE [Concomitant]
     Indication: CONSTIPATION PROPHYLAXIS
     Route: 048
     Dates: start: 20110810
  2. PREDNISONE [Suspect]
     Indication: PROSTATE CANCER
     Route: 048
     Dates: start: 20110519, end: 20110817
  3. LUPRON [Suspect]
     Route: 030
     Dates: start: 20110519
  4. ALLEGRA D 24 HOUR [Concomitant]
     Indication: MULTIPLE ALLERGIES
     Route: 048
     Dates: start: 20110414
  5. SALINEX NASAL [Concomitant]
     Indication: MULTIPLE ALLERGIES
     Route: 045
     Dates: start: 20110414
  6. IMODIUM [Concomitant]
     Indication: DIARRHOEA
     Dosage: 1 - 2 TABLETS
     Route: 048
     Dates: start: 20110729, end: 20110923
  7. LUPRON [Suspect]
     Indication: PROSTATE CANCER
     Route: 030
     Dates: start: 20110215
  8. ALEVE [Concomitant]
     Indication: PAIN
     Dosage: 1 - 2 TABLETS AS NEEDED (PRN)
     Route: 048
     Dates: start: 20110222
  9. ABIRATERONE ACETATE [Suspect]
     Indication: PROSTATE CANCER
     Route: 048
     Dates: start: 20110519, end: 20110809
  10. ASPIRIN [Concomitant]
     Indication: CARDIAC DISORDER
     Route: 048
     Dates: start: 20110728
  11. ABIRATERONE ACETATE [Suspect]
     Route: 048
  12. METOPROLOL TARTRATE [Concomitant]
     Route: 048

REACTIONS (1)
  - STAPHYLOCOCCAL INFECTION [None]
